FAERS Safety Report 9607333 (Version 1)
Quarter: 2013Q4

REPORT INFORMATION
  Report Type: Spontaneous
  Country: US (occurrence: None)
  Receive Date: 20131007
  Receipt Date: 20131007
  Transmission Date: 20140711
  Serious: Yes (Other)
  Sender: FDA-Public Use
  Company Number: None

PATIENT
  Age: 3 Year
  Sex: Male
  Weight: 17.24 kg

DRUGS (3)
  1. SINGULAIR [Suspect]
     Indication: BRONCHITIS
     Dosage: 1 PILL, ONCE DAILY
     Route: 048
     Dates: start: 20130923, end: 20131004
  2. SINGULAIR [Suspect]
     Indication: WHEEZING
     Dosage: 1 PILL, ONCE DAILY
     Route: 048
     Dates: start: 20130923, end: 20131004
  3. SINGULAIR [Suspect]
     Indication: SEASONAL ALLERGY
     Dosage: 1 PILL, ONCE DAILY
     Route: 048
     Dates: start: 20130923, end: 20131004

REACTIONS (2)
  - Sleep terror [None]
  - Insomnia [None]
